FAERS Safety Report 14242806 (Version 5)
Quarter: 2018Q4

REPORT INFORMATION
  Report Type: Spontaneous
  Country: GB (occurrence: GB)
  Receive Date: 20171201
  Receipt Date: 20181104
  Transmission Date: 20190204
  Serious: Yes (Disabling, Other)
  Sender: FDA-Public Use
  Company Number: GB-009507513-1711GBR012693

PATIENT
  Age: 52 Year
  Sex: Male

DRUGS (1)
  1. SIMVASTATIN. [Suspect]
     Active Substance: SIMVASTATIN
     Indication: HYPERCHOLESTEROLAEMIA
     Dosage: UNK
     Route: 048

REACTIONS (2)
  - Necrotising myositis [Recovering/Resolving]
  - Immune-mediated necrotising myopathy [Recovering/Resolving]
